FAERS Safety Report 7288800-4 (Version None)
Quarter: 2011Q1

REPORT INFORMATION
  Report Type: 
  Country: None (occurrence: None)
  Receive Date: 20110201
  Receipt Date: 20110124
  Transmission Date: 20110831
  Serious: Yes (Life-Threatening, Other)
  Sender: FDA-Public Use
  Company Number: 2010158821

PATIENT
  Age: 38 Year
  Sex: Female
  Weight: 130 kg

DRUGS (3)
  1. ACTILYSE ^BOEHRUNGER INGELHEIM^ (ALTEPLASE) [Suspect]
     Indication: PULMONARY EMBOLISM
  2. ZINACEF [Concomitant]
  3. FRAGMIN P FORTE (DALTEPARIN SODIUM) SOLUTION FOR INJECTION [Suspect]
     Dosage: 5000 IU, 1X/DAY
     Dates: start: 20101117

REACTIONS (13)
  - PULMONARY EMBOLISM [None]
  - DILATATION VENTRICULAR [None]
  - PUNCTURE SITE HAEMORRHAGE [None]
  - DEEP VEIN THROMBOSIS [None]
  - ABDOMINAL WALL HAEMATOMA [None]
  - HYDRONEPHROSIS [None]
  - URETERIC DILATATION [None]
  - COLD SWEAT [None]
  - CARDIOGENIC SHOCK [None]
  - FALL [None]
  - HAEMOGLOBIN DECREASED [None]
  - CAESAREAN SECTION [None]
  - GINGIVAL BLEEDING [None]
